FAERS Safety Report 17843660 (Version 2)
Quarter: 2021Q3

REPORT INFORMATION
  Report Type: Spontaneous
  Country: CN (occurrence: CN)
  Receive Date: 20200531
  Receipt Date: 20210906
  Transmission Date: 20211014
  Serious: Yes (Other)
  Sender: FDA-Public Use
  Company Number: CN-ROCHE-2381130

PATIENT
  Age: 50 Year
  Sex: Female

DRUGS (18)
  1. XELODA [Suspect]
     Active Substance: CAPECITABINE
     Route: 048
     Dates: start: 20160922, end: 20161222
  2. BEVACIZUMAB. [Suspect]
     Active Substance: BEVACIZUMAB
     Route: 065
     Dates: start: 20191206, end: 20191227
  3. XELODA [Suspect]
     Active Substance: CAPECITABINE
     Dosage: MONOTHERAPY CHEMOTHERAPY
     Route: 048
     Dates: start: 2016
  4. XELODA [Suspect]
     Active Substance: CAPECITABINE
     Route: 065
     Dates: start: 20191206, end: 20191227
  5. RALTITREXED [Suspect]
     Active Substance: RALTITREXED
     Indication: RECTAL ADENOCARCINOMA
     Dosage: SUBSEQUENT DOSE: 20?JUL?2021
     Route: 065
     Dates: start: 20210412
  6. XELODA [Suspect]
     Active Substance: CAPECITABINE
     Route: 065
     Dates: start: 20181010, end: 20181117
  7. OXALIPLATIN. [Suspect]
     Active Substance: OXALIPLATIN
     Route: 065
     Dates: start: 20160922, end: 20161222
  8. 5?FLUOROURACIL [Suspect]
     Active Substance: FLUOROURACIL
     Indication: RECTAL ADENOCARCINOMA
     Route: 065
     Dates: start: 20190105, end: 20190415
  9. OXALIPLATIN. [Suspect]
     Active Substance: OXALIPLATIN
     Indication: RECTAL ADENOCARCINOMA
     Route: 065
     Dates: start: 20160716
  10. CALCIUM FOLINATE [Suspect]
     Active Substance: LEUCOVORIN CALCIUM
     Indication: RECTAL ADENOCARCINOMA
     Route: 065
     Dates: start: 20190105, end: 20190415
  11. XELODA [Suspect]
     Active Substance: CAPECITABINE
     Indication: RECTAL ADENOCARCINOMA
     Route: 048
     Dates: start: 20160716
  12. XELODA [Suspect]
     Active Substance: CAPECITABINE
     Route: 048
     Dates: start: 20170718
  13. BEVACIZUMAB. [Suspect]
     Active Substance: BEVACIZUMAB
     Indication: RECTAL ADENOCARCINOMA
     Route: 065
     Dates: start: 20190105, end: 20190415
  14. OXALIPLATIN. [Suspect]
     Active Substance: OXALIPLATIN
     Route: 065
     Dates: start: 20170718
  15. OXALIPLATIN. [Suspect]
     Active Substance: OXALIPLATIN
     Route: 065
     Dates: start: 20210412
  16. OXALIPLATIN. [Suspect]
     Active Substance: OXALIPLATIN
     Route: 065
     Dates: start: 20190105, end: 20190415
  17. XELODA [Suspect]
     Active Substance: CAPECITABINE
     Dosage: MONOTHERAPY CHEMOTHERAPY
     Route: 048
     Dates: start: 2018
  18. BEVACIZUMAB. [Suspect]
     Active Substance: BEVACIZUMAB
     Route: 065
     Dates: start: 20210412, end: 20210720

REACTIONS (12)
  - Myelosuppression [Recovering/Resolving]
  - Gastrointestinal disorder [Unknown]
  - Anastomotic stenosis [Unknown]
  - Neurotoxicity [Unknown]
  - Gastroenteritis radiation [Recovering/Resolving]
  - Stoma site extravasation [Unknown]
  - Renal disorder [Unknown]
  - Granulocyte count decreased [Unknown]
  - Skin oedema [Unknown]
  - Rash [Unknown]
  - Colitis [Unknown]
  - White blood cell count decreased [Unknown]

NARRATIVE: CASE EVENT DATE: 2016
